FAERS Safety Report 12156173 (Version 2)
Quarter: 2016Q2

REPORT INFORMATION
  Report Type: Spontaneous
  Country: US (occurrence: US)
  Receive Date: 20160307
  Receipt Date: 20160527
  Transmission Date: 20160815
  Serious: No
  Sender: FDA-Public Use
  Company Number: US-ELI_LILLY_AND_COMPANY-US201602005880

PATIENT
  Age: 75 Year
  Sex: Female
  Weight: 117.5 kg

DRUGS (1)
  1. ADCIRCA [Suspect]
     Active Substance: TADALAFIL
     Indication: PULMONARY ARTERIAL HYPERTENSION
     Dosage: (2 TABS OF 20MG )40 MG, QD
     Route: 048
     Dates: start: 20150717

REACTIONS (1)
  - Petechiae [Recovered/Resolved]

NARRATIVE: CASE EVENT DATE: 201509
